FAERS Safety Report 21414196 (Version 1)
Quarter: 2022Q4

REPORT INFORMATION
  Report Type: Spontaneous
  Country: US (occurrence: US)
  Receive Date: 20221006
  Receipt Date: 20221006
  Transmission Date: 20230112
  Serious: No
  Sender: FDA-Public Use
  Company Number: US-ALLERGAN-2226281US

PATIENT
  Sex: Female

DRUGS (8)
  1. QULIPTA [Suspect]
     Active Substance: ATOGEPANT
     Indication: Migraine
     Route: 048
  2. VITAMINS [Concomitant]
     Active Substance: VITAMINS
  3. MOTRIN [Concomitant]
     Active Substance: IBUPROFEN
  4. NORETHINDRONE [Concomitant]
     Active Substance: NORETHINDRONE
  5. MAGNESIUM [Concomitant]
     Active Substance: MAGNESIUM
  6. MINERALS\VITAMINS [Concomitant]
     Active Substance: MINERALS\VITAMINS
  7. TOPIRAMATE [Concomitant]
     Active Substance: TOPIRAMATE
  8. RIZATRIPTAN [Concomitant]
     Active Substance: RIZATRIPTAN

REACTIONS (1)
  - Drug ineffective [Unknown]
